FAERS Safety Report 5871537-3 (Version None)
Quarter: 2008Q3

REPORT INFORMATION
  Report Type: 
  Country: None (occurrence: None)
  Receive Date: 20080905
  Receipt Date: 20080407
  Transmission Date: 20090109
  Serious: No
  Sender: FDA-Public Use
  Company Number: A0721363A

PATIENT
  Age: 84 Year
  Sex: Female

DRUGS (8)
  1. REQUIP [Suspect]
     Indication: RESTLESS LEGS SYNDROME
     Dosage: .5MG TWICE PER DAY
     Route: 048
     Dates: start: 20050101
  2. NEURONTIN [Concomitant]
  3. PRAVACHOL [Concomitant]
  4. CALCIUM WITH VITAMIN D [Concomitant]
  5. ASPIRIN [Concomitant]
  6. FUROSEMIDE [Concomitant]
  7. POTASSIUM CHLORIDE [Concomitant]
  8. NAPROXEN [Concomitant]

REACTIONS (1)
  - DRUG EFFECT DECREASED [None]
